FAERS Safety Report 9361757 (Version 2)
Quarter: 2013Q2

REPORT INFORMATION
  Report Type: Report from Study
  Country: ZA (occurrence: ZA)
  Receive Date: 20130621
  Receipt Date: 20130621
  Transmission Date: 20140414
  Serious: Yes (Hospitalization)
  Sender: FDA-Public Use
  Company Number: ZA-BRISTOL-MYERS SQUIBB COMPANY-18989137

PATIENT
  Age: 57 Year
  Sex: Male
  Weight: 81.1 kg

DRUGS (7)
  1. BLINDED: DAPAGLIFLOZIN [Suspect]
     Indication: TYPE 2 DIABETES MELLITUS
     Dosage: INT ON 4JU13?1DF:1TAB
     Route: 048
     Dates: start: 20130417, end: 20130604
  2. SAXAGLIPTIN [Suspect]
     Indication: TYPE 2 DIABETES MELLITUS
     Dosage: INT ON 4JU13?1DF:1TAB
     Route: 048
     Dates: start: 20130417, end: 20130604
  3. METFORMIN HCL [Suspect]
     Indication: TYPE 2 DIABETES MELLITUS
  4. BLINDED: PLACEBO [Suspect]
     Indication: TYPE 2 DIABETES MELLITUS
     Dosage: INT ON 4JU13
     Route: 048
     Dates: start: 20130417, end: 20130604
  5. ENALAPRIL [Concomitant]
     Route: 048
     Dates: end: 20130604
  6. ASPIRIN [Concomitant]
  7. HYDROCHLOROTHIAZIDE [Concomitant]

REACTIONS (1)
  - Hyperkalaemia [Recovered/Resolved]
